FAERS Safety Report 8211399-2 (Version None)
Quarter: 2012Q1

REPORT INFORMATION
  Report Type: 
  Country: None (occurrence: None)
  Receive Date: 20120315
  Receipt Date: 20120312
  Transmission Date: 20120608
  Serious: Yes (Other)
  Sender: FDA-Public Use
  Company Number: US-PFIZER INC-2012065228

PATIENT
  Sex: Female
  Weight: 61.224 kg

DRUGS (6)
  1. SPIRIVA [Concomitant]
     Indication: EMPHYSEMA
     Dosage: UNK
  2. SYMBICORT [Concomitant]
     Indication: EMPHYSEMA
     Dosage: UNK
  3. PRILOSEC [Concomitant]
     Indication: GASTRIC ULCER
     Dosage: 20 MG, UNK
  4. ZOCOR [Concomitant]
     Indication: BLOOD CHOLESTEROL INCREASED
     Dosage: 20 MG, UNK
  5. LYRICA [Suspect]
     Indication: PAIN
  6. LYRICA [Suspect]
     Indication: FIBROMYALGIA
     Dosage: 50 MG, 2X/DAY
     Route: 048

REACTIONS (3)
  - EYE DISORDER [None]
  - CATARACT [None]
  - POST PROCEDURAL COMPLICATION [None]
